FAERS Safety Report 4429821-6 (Version None)
Quarter: 2004Q3

REPORT INFORMATION
  Report Type: 
  Country: None (occurrence: None)
  Receive Date: 20040819
  Receipt Date: 20040806
  Transmission Date: 20050211
  Serious: No
  Sender: FDA-Public Use
  Company Number: 2004UW16951

PATIENT
  Age: 51 Year
  Sex: Male

DRUGS (7)
  1. CRESTOR [Suspect]
     Indication: BLOOD CHOLESTEROL INCREASED
     Dosage: 20 MG DAILY PO
     Route: 048
     Dates: start: 20040501, end: 20040804
  2. LIPITOR [Concomitant]
  3. INDAPAMIDE [Concomitant]
  4. RHOTRAL [Concomitant]
  5. MONOPRIL [Concomitant]
  6. METFORMIN HCL [Concomitant]
  7. NOVASEN [Concomitant]

REACTIONS (3)
  - HYPOAESTHESIA [None]
  - MYALGIA [None]
  - TRANSIENT ISCHAEMIC ATTACK [None]
